FAERS Safety Report 9825229 (Version 1)
Quarter: 2014Q1

REPORT INFORMATION
  Report Type: Spontaneous
  Country: US (occurrence: None)
  Receive Date: 20140115
  Receipt Date: 20140115
  Transmission Date: 20141002
  Serious: Yes (Hospitalization)
  Sender: FDA-Public Use
  Company Number: None

PATIENT
  Age: 75 Year
  Sex: Male
  Weight: 95.5 kg

DRUGS (2)
  1. IBUPROFEN [Suspect]
     Indication: PAIN
     Route: 048
     Dates: start: 20131230, end: 20140105
  2. ASPIRIN [Suspect]
     Indication: ATRIAL FIBRILLATION
     Route: 048
     Dates: start: 20130708

REACTIONS (2)
  - Duodenal ulcer [None]
  - Gastric haemorrhage [None]
